FAERS Safety Report 7138656-5 (Version None)
Quarter: 2010Q4

REPORT INFORMATION
  Report Type: 
  Country: None (occurrence: None)
  Receive Date: 20101122
  Receipt Date: 20101109
  Transmission Date: 20110411
  Serious: Yes (Other)
  Sender: FDA-Public Use
  Company Number: 20100521

PATIENT
  Age: 56 Year
  Sex: Male

DRUGS (10)
  1. SODIUM THIOSULFATE INJECTION, USP (5019-01) 25% [Suspect]
     Indication: CALCIPHYLAXIS
     Dosage: 25 GRAMS IN 250 ML NS ONCE INTRAVENOUS DRIP
     Route: 041
     Dates: start: 20100916, end: 20100916
  2. AMIODARONE [Concomitant]
  3. COUMADIN [Concomitant]
  4. LOPRESSOR [Concomitant]
  5. PHOS-RENAL [Concomitant]
  6. RENAGEL [Concomitant]
  7. SENSIIPAR [Concomitant]
  8. ZOCOR [Concomitant]
  9. ASPIRIN [Concomitant]
  10. COLACE [Concomitant]

REACTIONS (4)
  - FATIGUE [None]
  - HYPOTENSION [None]
  - INFUSION RELATED REACTION [None]
  - OFF LABEL USE [None]
